FAERS Safety Report 17855337 (Version 1)
Quarter: 2020Q2

REPORT INFORMATION
  Report Type: Spontaneous
  Country: US (occurrence: US)
  Receive Date: 20200603
  Receipt Date: 20200603
  Transmission Date: 20200714
  Serious: Yes (Death, Life-Threatening, Hospitalization, Other)
  Sender: FDA-Public Use
  Company Number: US-DRREDDYS-USA/USA/20/0123512

PATIENT
  Age: 60 Year
  Sex: Male

DRUGS (6)
  1. PREDNISONE. [Suspect]
     Active Substance: PREDNISONE
     Indication: APLASTIC ANAEMIA
  2. PREDNISONE. [Suspect]
     Active Substance: PREDNISONE
     Indication: IMMUNOSUPPRESSANT DRUG THERAPY
  3. TACROLIMUS. [Suspect]
     Active Substance: TACROLIMUS
     Indication: IMMUNOSUPPRESSANT DRUG THERAPY
  4. METHYLPREDNISOLONE. [Suspect]
     Active Substance: METHYLPREDNISOLONE
     Indication: APLASTIC ANAEMIA
  5. CICLOSPORIN [Suspect]
     Active Substance: CYCLOSPORINE
     Indication: APLASTIC ANAEMIA
  6. MYCOPHENOLATE MOFETIL. [Suspect]
     Active Substance: MYCOPHENOLATE MOFETIL
     Indication: IMMUNOSUPPRESSANT DRUG THERAPY

REACTIONS (16)
  - Condition aggravated [Fatal]
  - Microsporidia infection [Fatal]
  - Atypical mycobacterial infection [Unknown]
  - Pneumonia cytomegaloviral [Unknown]
  - Atypical mycobacterial pneumonia [Unknown]
  - Skin necrosis [Fatal]
  - Pneumonia fungal [Unknown]
  - Sinusitis [Unknown]
  - Pancytopenia [Unknown]
  - Tongue ulceration [Fatal]
  - Eschar [Fatal]
  - Thrombosis [Fatal]
  - Herpes zoster cutaneous disseminated [Unknown]
  - Cytomegalovirus chorioretinitis [Unknown]
  - Pneumonia influenzal [Unknown]
  - Aspergillus infection [Unknown]
